FAERS Safety Report 5410135-2 (Version None)
Quarter: 2007Q3

REPORT INFORMATION
  Report Type: 
  Country: None (occurrence: None)
  Receive Date: 20070809
  Receipt Date: 20070726
  Transmission Date: 20080115
  Serious: Yes (Other)
  Sender: FDA-Public Use
  Company Number: BR-SHR-BR-2007-028329

PATIENT
  Age: 38 Year
  Sex: Female

DRUGS (1)
  1. BETAFERON [Suspect]
     Dosage: 8 MIU, EVERY 2D
     Route: 058
     Dates: start: 20060101, end: 20070701

REACTIONS (5)
  - ASTHENIA [None]
  - BONE PAIN [None]
  - CSF PRESSURE INCREASED [None]
  - PAIN IN EXTREMITY [None]
  - VISUAL ACUITY REDUCED [None]
